FAERS Safety Report 8529337 (Version 2)
Quarter: 2012Q4

REPORT INFORMATION
  Report Type: 
  Country: FI (occurrence: FI)
  Receive Date: 20120425
  Receipt Date: 20120910
  Transmission Date: 20130627
  Serious: Yes (Hospitalization, Other)
  Sender: FDA-Public Use
  Company Number: PHHY2012FI034149

PATIENT
  Age: 83 Year
  Sex: Female

DRUGS (1)
  1. LEPONEX [Suspect]
     Dosage: 25 mg, UNK

REACTIONS (9)
  - Bundle branch block left [Unknown]
  - Electrocardiogram QT prolonged [Unknown]
  - Abdominal pain [Unknown]
  - Hepatic enzyme increased [Unknown]
  - Blood creatinine increased [Unknown]
  - Screaming [Unknown]
  - Anxiety [Unknown]
  - Confusional state [Unknown]
  - Abnormal behaviour [Unknown]
